FAERS Safety Report 7163901-X (Version None)
Quarter: 2010Q4

REPORT INFORMATION
  Report Type: 
  Country: None (occurrence: None)
  Receive Date: 20101210
  Receipt Date: 20101210
  Transmission Date: 20110411
  Serious: No
  Sender: FDA-Public Use
  Company Number: None

PATIENT
  Sex: Female

DRUGS (1)
  1. MIRAPEX [Suspect]
     Indication: RESTLESS LEGS SYNDROME
     Dosage: 2.0 MG (TOTAL DAILY DOSE) ORAL
     Route: 048
     Dates: start: 20090401, end: 20101001

REACTIONS (7)
  - ACTIVITIES OF DAILY LIVING IMPAIRED [None]
  - CONDITION AGGRAVATED [None]
  - DRUG EFFECT DECREASED [None]
  - DYSKINESIA [None]
  - INSOMNIA [None]
  - QUALITY OF LIFE DECREASED [None]
  - RESTLESS LEGS SYNDROME [None]
